FAERS Safety Report 10242339 (Version 1)
Quarter: 2014Q2

REPORT INFORMATION
  Report Type: Spontaneous
  Country: US (occurrence: US)
  Receive Date: 20140617
  Receipt Date: 20140617
  Transmission Date: 20141212
  Serious: No
  Sender: FDA-Public Use
  Company Number: US-009507513-1405USA003681

PATIENT
  Age: 3 Year
  Sex: Male

DRUGS (2)
  1. COPPERTONE KIDS CONTINUOUS SPRAY SPF-50 [Suspect]
     Indication: PRODUCT USED FOR UNKNOWN INDICATION
     Dosage: UNK, UNKNOWN
     Route: 061
  2. COPPERTONE KIDS CONTINUOUS SPRAY SPF-50 [Suspect]
     Dosage: UNK, UNKNOWN
     Route: 061

REACTIONS (2)
  - Scar [Not Recovered/Not Resolved]
  - Sunburn [Recovering/Resolving]
